FAERS Safety Report 9499170 (Version 2)
Quarter: 2013Q3

REPORT INFORMATION
  Report Type: Spontaneous
  Country: US (occurrence: US)
  Receive Date: 20130905
  Receipt Date: 20130905
  Transmission Date: 20140515
  Serious: Yes (Other)
  Sender: FDA-Public Use
  Company Number: US-AMGEN-USASP2013019611

PATIENT
  Age: 56 Year
  Sex: Female
  Weight: 56 kg

DRUGS (8)
  1. PROCRIT [Suspect]
     Indication: ANAEMIA
     Dosage: UNK
     Route: 065
  2. INCIVEK [Suspect]
     Indication: HEPATITIS C
     Dosage: UNK
     Route: 065
     Dates: start: 2011, end: 201111
  3. INCIVEK [Suspect]
     Dosage: 750 MG, TID
     Route: 048
     Dates: start: 20121114, end: 201302
  4. INCIVEK [Suspect]
     Dosage: UNK
     Route: 065
     Dates: start: 2013
  5. PEGASYS [Suspect]
     Indication: HEPATITIS C
     Dosage: 2 DF, BID
     Route: 065
     Dates: start: 20121114
  6. PEGASYS [Suspect]
     Dosage: 180 MUG, QWK
     Route: 058
     Dates: start: 20121114, end: 201306
  7. RIBAVIRIN [Suspect]
     Indication: HEPATITIS C
     Dosage: 600 MG, BID
     Route: 048
     Dates: start: 20121114, end: 201303
  8. RIBAVIRIN [Suspect]
     Dosage: 400 MG, BID
     Route: 048
     Dates: start: 201303, end: 201306

REACTIONS (6)
  - Anaemia [Recovered/Resolved]
  - Neutropenia [Recovered/Resolved]
  - Decreased appetite [Not Recovered/Not Resolved]
  - Fatigue [Not Recovered/Not Resolved]
  - White blood cell count decreased [Recovered/Resolved]
  - Nausea [Not Recovered/Not Resolved]
